FAERS Safety Report 4916477-9 (Version None)
Quarter: 2006Q1

REPORT INFORMATION
  Report Type: 
  Country: None (occurrence: None)
  Receive Date: 20060214
  Receipt Date: 20060202
  Transmission Date: 20060701
  Serious: Yes (Hospitalization)
  Sender: FDA-Public Use
  Company Number: 2006-CZ-00605

PATIENT
  Age: 52 Year
  Sex: Male

DRUGS (13)
  1. PREDNISOLONE TAB [Suspect]
     Indication: NON-HODGKIN'S LYMPHOMA
     Dosage: 1 IN 3 WK,
  2. DOXORUBICIN HCL [Suspect]
     Indication: NON-HODGKIN'S LYMPHOMA
     Dosage: 1 IN 3 WK,
  3. CYCLOPHOSPHAMIDE [Suspect]
     Indication: NON-HODGKIN'S LYMPHOMA
     Dosage: 1 IN 3 WK,
  4. VINCRISTINE [Suspect]
     Indication: NON-HODGKIN'S LYMPHOMA
     Dosage: 1 IN 3 WK,
  5. RITUXIMAB [Suspect]
  6. CARBAMAZEPINE [Concomitant]
  7. OMEPRAZOLE [Concomitant]
  8. PRAVASTATIN [Concomitant]
  9. METOPROLOL [Concomitant]
  10. FUROSEMIDE [Concomitant]
  11. SPIRONOLACTONE [Concomitant]
  12. WARFARIN [Concomitant]
  13. LEVOTHYROXINE SODIUM [Concomitant]

REACTIONS (6)
  - CHEST X-RAY ABNORMAL [None]
  - NEUTROPENIA [None]
  - PLEURITIC PAIN [None]
  - PYREXIA [None]
  - RESPIRATORY FAILURE [None]
  - RESTRICTIVE PULMONARY DISEASE [None]
